FAERS Safety Report 18617740 (Version 1)
Quarter: 2020Q4

REPORT INFORMATION
  Report Type: Spontaneous
  Country: CA (occurrence: CA)
  Receive Date: 20201215
  Receipt Date: 20201215
  Transmission Date: 20210114
  Serious: Yes (Hospitalization, Other)
  Sender: FDA-Public Use
  Company Number: CA-BAYER-2020-266654

PATIENT
  Age: 56 Year
  Sex: Female

DRUGS (29)
  1. ARAVA [Suspect]
     Active Substance: LEFLUNOMIDE
  2. METHOTREXATE. [Suspect]
     Active Substance: METHOTREXATE
  3. RISEDRONATE [Concomitant]
     Active Substance: RISEDRONATE SODIUM
  4. APO-NAPROXEN [Suspect]
     Active Substance: NAPROXEN
  5. ENBREL [Suspect]
     Active Substance: ETANERCEPT
  6. HUMIRA [Suspect]
     Active Substance: ADALIMUMAB
  7. INFLIXIMAB [Suspect]
     Active Substance: INFLIXIMAB
  8. ORENCIA [Suspect]
     Active Substance: ABATACEPT
  9. ANAKINRA [Suspect]
     Active Substance: ANAKINRA
  10. PREDNISONE. [Suspect]
     Active Substance: PREDNISONE
  11. FOLIC ACID. [Suspect]
     Active Substance: FOLIC ACID
  12. REMICADE [Suspect]
     Active Substance: INFLIXIMAB
  13. SIMPONI [Suspect]
     Active Substance: GOLIMUMAB
  14. APO-PREDNISONE [Suspect]
     Active Substance: PREDNISONE
  15. HYDROXYCHLOROQUINE [Suspect]
     Active Substance: HYDROXYCHLOROQUINE
  16. HYDROXYCHLOROQUINE SULFATE. [Suspect]
     Active Substance: HYDROXYCHLOROQUINE SULFATE
  17. SULFASALAZINE. [Suspect]
     Active Substance: SULFASALAZINE
  18. XELJANZ [Suspect]
     Active Substance: TOFACITINIB CITRATE
  19. GOLD [Suspect]
     Active Substance: GOLD
  20. RISEDRONATE SODIUM. [Suspect]
     Active Substance: RISEDRONATE SODIUM
  21. RITUXIMAB. [Suspect]
     Active Substance: RITUXIMAB
  22. TRIAMCINOLONE [Suspect]
     Active Substance: TRIAMCINOLONE
  23. ALEVE [Suspect]
     Active Substance: NAPROXEN SODIUM
  24. ADALIMUMAB [Suspect]
     Active Substance: ADALIMUMAB
  25. IMMUNE GLOBULIN (IMMUNOGLOBULINS NOS) [Suspect]
     Active Substance: IMMUNE GLOBULIN NOS
  26. TRIAMCINOLONE ACETONIDE. [Suspect]
     Active Substance: TRIAMCINOLONE ACETONIDE
  27. ACTEMRA [Suspect]
     Active Substance: TOCILIZUMAB
  28. APO-LEFLUNOMIDE [Suspect]
     Active Substance: LEFLUNOMIDE
  29. CIMZIA [Suspect]
     Active Substance: CERTOLIZUMAB PEGOL

REACTIONS (46)
  - Arthropathy [Not Recovered/Not Resolved]
  - Foot operation [Not Recovered/Not Resolved]
  - Hypokalaemia [Not Recovered/Not Resolved]
  - Nausea [Not Recovered/Not Resolved]
  - Therapeutic product effect decreased [Not Recovered/Not Resolved]
  - Condition aggravated [Not Recovered/Not Resolved]
  - Contraindicated product administered [Not Recovered/Not Resolved]
  - Foot deformity [Not Recovered/Not Resolved]
  - Hypertension [Not Recovered/Not Resolved]
  - Wheelchair user [Not Recovered/Not Resolved]
  - Anti-cyclic citrullinated peptide antibody positive [Not Recovered/Not Resolved]
  - Ankle arthroplasty [Not Recovered/Not Resolved]
  - Arthritis [Not Recovered/Not Resolved]
  - Drug hypersensitivity [Not Recovered/Not Resolved]
  - Drug intolerance [Not Recovered/Not Resolved]
  - Gastroenteritis viral [Not Recovered/Not Resolved]
  - Hand deformity [Not Recovered/Not Resolved]
  - Hypotension [Not Recovered/Not Resolved]
  - Intentional product use issue [Not Recovered/Not Resolved]
  - Loss of consciousness [Not Recovered/Not Resolved]
  - Nodule [Not Recovered/Not Resolved]
  - Obesity [Not Recovered/Not Resolved]
  - Pulmonary fibrosis [Not Recovered/Not Resolved]
  - Vomiting [Not Recovered/Not Resolved]
  - Hypocalcaemia [Not Recovered/Not Resolved]
  - Immunodeficiency [Not Recovered/Not Resolved]
  - Pleural effusion [Not Recovered/Not Resolved]
  - Therapy non-responder [Not Recovered/Not Resolved]
  - Ill-defined disorder [Not Recovered/Not Resolved]
  - Polyarthritis [Not Recovered/Not Resolved]
  - Psoriasis [Not Recovered/Not Resolved]
  - Joint destruction [Not Recovered/Not Resolved]
  - Limb discomfort [Not Recovered/Not Resolved]
  - Rheumatoid arthritis [Not Recovered/Not Resolved]
  - Dizziness [Not Recovered/Not Resolved]
  - Loss of personal independence in daily activities [Not Recovered/Not Resolved]
  - Mobility decreased [Not Recovered/Not Resolved]
  - Pyrexia [Not Recovered/Not Resolved]
  - Synovitis [Not Recovered/Not Resolved]
  - Adrenal insufficiency [Not Recovered/Not Resolved]
  - Diarrhoea [Not Recovered/Not Resolved]
  - Drug ineffective [Not Recovered/Not Resolved]
  - Infection [Not Recovered/Not Resolved]
  - Malaise [Not Recovered/Not Resolved]
  - Off label use [Not Recovered/Not Resolved]
  - Red blood cell sedimentation rate abnormal [Not Recovered/Not Resolved]
